FAERS Safety Report 19249807 (Version 2)
Quarter: 2023Q2

REPORT INFORMATION
  Report Type: Spontaneous
  Country: US (occurrence: US)
  Receive Date: 20210512
  Receipt Date: 20230526
  Transmission Date: 20230721
  Serious: Yes (Other)
  Sender: FDA-Public Use
  Company Number: US-UCBSA-2020046344

PATIENT
  Sex: Female

DRUGS (23)
  1. CIMZIA [Suspect]
     Active Substance: CERTOLIZUMAB PEGOL
     Indication: Psoriatic arthropathy
     Dosage: 200 MILLIGRAM, UNK
     Route: 058
     Dates: end: 20200930
  2. ZYRTEC [Concomitant]
     Active Substance: CETIRIZINE HYDROCHLORIDE
  3. TRANDOLAPRIL [Concomitant]
     Active Substance: TRANDOLAPRIL
  4. CARVEDILOL [Concomitant]
     Active Substance: CARVEDILOL
  5. DEXILANT [Concomitant]
     Active Substance: DEXLANSOPRAZOLE
  6. DULOXETINE HYDROCHLORIDE [Concomitant]
     Active Substance: DULOXETINE HYDROCHLORIDE
  7. ABILIFY [Concomitant]
     Active Substance: ARIPIPRAZOLE
  8. METFORMIN HYDROCHLORIDE [Concomitant]
     Active Substance: METFORMIN HYDROCHLORIDE
  9. JANUVIA [Concomitant]
     Active Substance: SITAGLIPTIN PHOSPHATE
  10. GABAPENTIN [Concomitant]
     Active Substance: GABAPENTIN
  11. PLAQUENIL [Concomitant]
     Active Substance: HYDROXYCHLOROQUINE SULFATE
  12. METHOTREXATE [Concomitant]
     Active Substance: METHOTREXATE
  13. HERBALS\TURMERIC [Concomitant]
     Active Substance: HERBALS\TURMERIC
  14. GINGER [Concomitant]
     Active Substance: GINGER
  15. FOLIC ACID [Concomitant]
     Active Substance: FOLIC ACID
  16. CEFIXIME [Concomitant]
     Active Substance: CEFIXIME
  17. VALTREX [Concomitant]
     Active Substance: VALACYCLOVIR HYDROCHLORIDE
  18. LYSINE HCL [Concomitant]
  19. SEROQUEL [Concomitant]
     Active Substance: QUETIAPINE FUMARATE
  20. SINGULAIR [Concomitant]
     Active Substance: MONTELUKAST SODIUM
  21. PULMICORT TURBUHALER [Concomitant]
     Active Substance: BUDESONIDE
  22. MOMETASONE FUROATE [Concomitant]
     Active Substance: MOMETASONE FUROATE
  23. VENTOLIN HFA [Concomitant]
     Active Substance: ALBUTEROL SULFATE

REACTIONS (1)
  - Transient ischaemic attack [Unknown]
